FAERS Safety Report 5651687-7 (Version None)
Quarter: 2008Q1

REPORT INFORMATION
  Report Type: 
  Country: None (occurrence: None)
  Receive Date: 20080305
  Receipt Date: 20080228
  Transmission Date: 20080703
  Serious: Yes (Hospitalization, Other)
  Sender: FDA-Public Use
  Company Number: US-ABBOTT-08P-163-0435389-00

PATIENT
  Sex: Male
  Weight: 88.53 kg

DRUGS (5)
  1. HUMIRA [Suspect]
     Indication: RHEUMATOID ARTHRITIS
     Route: 058
     Dates: start: 20060101
  2. INSULIN [Concomitant]
     Indication: DIABETES MELLITUS
     Route: 058
     Dates: start: 20030101
  3. LEVOTHYROXINE SODIUM [Concomitant]
     Indication: HYPOTHYROIDISM
     Route: 058
     Dates: start: 20060101
  4. POLYSACCHARIDE-IRON COMPLEX [Concomitant]
     Indication: DRUG USE FOR UNKNOWN INDICATION
  5. MESALAMINE [Concomitant]
     Indication: DRUG USE FOR UNKNOWN INDICATION

REACTIONS (12)
  - ANAEMIA [None]
  - ANORECTAL ULCER [None]
  - ASTHMA [None]
  - CHEST PAIN [None]
  - COLON ADENOMA [None]
  - DIABETES MELLITUS [None]
  - GASTROINTESTINAL EROSION [None]
  - GASTROINTESTINAL INFLAMMATION [None]
  - GASTROINTESTINAL TRACT ADENOMA [None]
  - HYPERTHYROIDISM [None]
  - POLYP [None]
  - RHEUMATOID ARTHRITIS [None]
